FAERS Safety Report 7095914-0 (Version None)
Quarter: 2010Q4

REPORT INFORMATION
  Report Type: 
  Country: None (occurrence: None)
  Receive Date: 20101111
  Receipt Date: 20080711
  Transmission Date: 20110411
  Serious: No
  Sender: FDA-Public Use
  Company Number: US-KINGPHARMUSA00001-K200800813

PATIENT
  Sex: Female

DRUGS (2)
  1. ALTACE [Suspect]
     Dosage: 10 MG, UNK
     Dates: start: 20080101
  2. ALTACE [Suspect]
     Dosage: 5 MG, UNK
     Dates: start: 20060101, end: 20080101

REACTIONS (1)
  - DIARRHOEA [None]
